FAERS Safety Report 16723518 (Version 1)
Quarter: 2019Q3

REPORT INFORMATION
  Report Type: Spontaneous
  Country: PL (occurrence: PL)
  Receive Date: 20190821
  Receipt Date: 20190821
  Transmission Date: 20191005
  Serious: Yes (Death, Other)
  Sender: FDA-Public Use
  Company Number: PL-ACCORD-152331

PATIENT
  Age: 10 Year
  Sex: Female

DRUGS (7)
  1. MABTHERA [Suspect]
     Active Substance: RITUXIMAB
     Indication: NEUROSARCOIDOSIS
     Route: 065
  2. PREDNISONE. [Suspect]
     Active Substance: PREDNISONE
     Indication: IMMUNOSUPPRESSION
  3. MYCOPHENOLIC ACID. [Suspect]
     Active Substance: MYCOPHENOLIC ACID
     Indication: NEUROSARCOIDOSIS
     Route: 065
  4. PREDNISONE. [Suspect]
     Active Substance: PREDNISONE
     Indication: IMMUNOMODULATORY THERAPY
  5. METHYLPREDNISOLONE. [Suspect]
     Active Substance: METHYLPREDNISOLONE
     Indication: IMMUNOSUPPRESSION
     Route: 065
  6. CYCLOPHOSPHAMIDE/CYCLOPHOSPHAMIDE MONOHYDRATE [Suspect]
     Active Substance: CYCLOPHOSPHAMIDE
     Indication: NEUROSARCOIDOSIS
     Route: 065
  7. METHYLPREDNISOLONE. [Suspect]
     Active Substance: METHYLPREDNISOLONE
     Indication: IMMUNOMODULATORY THERAPY
     Route: 065

REACTIONS (13)
  - Drug ineffective [Unknown]
  - Therapy non-responder [Fatal]
  - Sleep disorder [Unknown]
  - Product use issue [Unknown]
  - Renal failure [Fatal]
  - Concomitant disease progression [Fatal]
  - Germ cell cancer [Fatal]
  - Product use in unapproved indication [Fatal]
  - Quadriparesis [Unknown]
  - Disseminated intravascular coagulation [Fatal]
  - Pancytopenia [Fatal]
  - Dementia [Not Recovered/Not Resolved]
  - Cerebral atrophy [Fatal]
